FAERS Safety Report 7352236-8 (Version None)
Quarter: 2011Q1

REPORT INFORMATION
  Report Type: 
  Country: None (occurrence: None)
  Receive Date: 20110315
  Receipt Date: 20110228
  Transmission Date: 20110831
  Serious: Yes (Other)
  Sender: FDA-Public Use
  Company Number: US-BAYER-201022289NA

PATIENT
  Sex: Female
  Weight: 68.027 kg

DRUGS (8)
  1. YAZ [Suspect]
     Indication: ORAL CONTRACEPTION
     Route: 048
     Dates: start: 20040101, end: 20080901
  2. UNCODEABLE ^UNCLASSIFIABLE^ [Concomitant]
     Dosage: 0.5 %, UNK
     Route: 047
     Dates: start: 20070803
  3. CITALOPRAM HYDROBROMIDE [Concomitant]
     Dosage: 40 MG, UNK
     Dates: start: 20080716, end: 20080929
  4. YASMIN [Suspect]
     Indication: ORAL CONTRACEPTION
     Dosage: UNK
     Route: 048
     Dates: start: 20040601, end: 20080901
  5. PENICILLIN VK [Concomitant]
     Dosage: 500 MG, UNK
     Route: 048
     Dates: start: 20080827
  6. UNCODEABLE ^UNCLASSIFIABLE^ [Concomitant]
     Dosage: 5 MG, PRN
     Dates: start: 20080827
  7. UNCODEABLE ^UNCLASSIFIABLE^ [Concomitant]
     Dosage: 25 MG, UNK
     Route: 048
  8. SERTRALINE [Concomitant]
     Dosage: 50 MG, UNK
     Route: 048
     Dates: start: 20070702

REACTIONS (2)
  - ABDOMINAL PAIN UPPER [None]
  - GALLBLADDER DISORDER [None]
